FAERS Safety Report 6868845-6 (Version None)
Quarter: 2010Q3

REPORT INFORMATION
  Report Type: 
  Country: None (occurrence: None)
  Receive Date: 20100722
  Receipt Date: 20080801
  Transmission Date: 20110219
  Serious: Yes (Other)
  Sender: FDA-Public Use
  Company Number: US-PFIZER INC-2008053090

PATIENT
  Sex: Male
  Weight: 74.8 kg

DRUGS (2)
  1. CHANTIX [Suspect]
     Indication: SMOKING CESSATION THERAPY
  2. LOTREL [Concomitant]

REACTIONS (3)
  - ABNORMAL DREAMS [None]
  - SUICIDAL IDEATION [None]
  - UNEVALUABLE EVENT [None]
